APPROVED DRUG PRODUCT: BUTALBITAL, ASPIRIN AND CAFFEINE
Active Ingredient: ASPIRIN; BUTALBITAL; CAFFEINE
Strength: 500MG;50MG;40MG
Dosage Form/Route: CAPSULE;ORAL
Application: A205230 | Product #001
Applicant: LGM PHARMA SOLUTIONS LLC
Approved: Oct 18, 2021 | RLD: No | RS: No | Type: DISCN